FAERS Safety Report 6791210-7 (Version None)
Quarter: 2010Q2

REPORT INFORMATION
  Report Type: 
  Country: None (occurrence: None)
  Receive Date: 20100624
  Receipt Date: 20100621
  Transmission Date: 20101027
  Serious: Yes (Death, Life-Threatening, Hospitalization)
  Sender: FDA-Public Use
  Company Number: US-WYE-H15835510

PATIENT
  Age: 69 Year
  Sex: Female
  Weight: 79.8 kg

DRUGS (19)
  1. CORDARONE [Suspect]
     Indication: DRUG USE FOR UNKNOWN INDICATION
     Route: 048
     Dates: start: 20100218, end: 20100224
  2. CORDARONE [Suspect]
     Route: 048
     Dates: start: 20100226, end: 20100319
  3. DOBUTAMINE HCL [Concomitant]
     Dosage: UNKNOWN
     Dates: start: 20100225, end: 20100324
  4. ALBUMIN (HUMAN) [Concomitant]
     Dosage: UNKNOWN
     Dates: start: 20100225, end: 20100301
  5. ACETYLSALICYLIC ACID [Concomitant]
     Dosage: UNKNOWN
     Dates: start: 20100225, end: 20100225
  6. OXYCODONE HCL AND ACETAMINOPHEN [Concomitant]
     Dosage: UNKNOWN
     Dates: start: 20100226, end: 20100321
  7. CALCIUM CHLORIDE DIHYDRATE [Concomitant]
     Dosage: UNKNOWN
     Dates: start: 20100226, end: 20100319
  8. KETOROLAC TROMETHAMINE [Concomitant]
     Dosage: UNKNOWN
     Dates: start: 20100227, end: 20100227
  9. MORPHINE SULFATE [Concomitant]
     Dosage: UNKNOWN
     Dates: start: 20100227
  10. ACETAMINOPHEN [Concomitant]
     Dosage: UNKNOWN
     Dates: start: 20100227, end: 20100309
  11. EPINEPHRINE [Concomitant]
     Dosage: UNKNOWN
     Dates: start: 20100227, end: 20100228
  12. SODIUM ACETATE [Concomitant]
     Dosage: UNKNOWN
     Dates: start: 20100227, end: 20100228
  13. VYTORIN [Concomitant]
     Dosage: UNKNOWN
     Dates: end: 20100224
  14. INSULIN [Concomitant]
     Dosage: UNKNOWN
     Dates: start: 20100225
  15. VASOPRESSIN INJECTION [Concomitant]
     Dosage: UNKNOWN
     Dates: start: 20100225
  16. MILRINONE [Concomitant]
     Dosage: UNKNOWN
     Dates: start: 20100226, end: 20100304
  17. EPINEPHRINE [Concomitant]
     Dosage: UNKNOWN
     Dates: start: 20100227, end: 20100302
  18. POTASSIUM CHLORIDE [Concomitant]
     Dosage: UNKNOWN
     Dates: start: 20100225
  19. AMIODARONE HYDROCHLORIDE [Suspect]
     Indication: DRUG USE FOR UNKNOWN INDICATION
     Dosage: 150 MG; AS NEEDED
     Route: 042
     Dates: start: 20100228, end: 20100318

REACTIONS (2)
  - ACUTE RESPIRATORY FAILURE [None]
  - MYOCARDIAL INFARCTION [None]
